FAERS Safety Report 4379883-X (Version None)
Quarter: 2004Q2

REPORT INFORMATION
  Report Type: 
  Country: None (occurrence: None)
  Receive Date: 20040614
  Receipt Date: 20040531
  Transmission Date: 20050107
  Serious: Yes (Other)
  Sender: FDA-Public Use
  Company Number: JP-JNJFOC-20040504990

PATIENT
  Sex: Female

DRUGS (26)
  1. RISPERDAL [Suspect]
     Indication: SCHIZOPHRENIA
     Dosage: 1 MG, ORAL; 1.5 MG, ORAL, 2 MG, ORAL; 2.5 MG, ORAL; 1 MG ORAL
     Route: 048
     Dates: start: 20010611
  2. RISPERDAL [Suspect]
     Indication: SCHIZOPHRENIA
     Dosage: 1 MG, ORAL; 1.5 MG, ORAL, 2 MG, ORAL; 2.5 MG, ORAL; 1 MG ORAL
     Route: 048
     Dates: start: 20010625
  3. RISPERDAL [Suspect]
     Indication: SCHIZOPHRENIA
     Dosage: 1 MG, ORAL; 1.5 MG, ORAL, 2 MG, ORAL; 2.5 MG, ORAL; 1 MG ORAL
     Route: 048
     Dates: start: 20010806
  4. RISPERDAL [Suspect]
     Indication: SCHIZOPHRENIA
     Dosage: 1 MG, ORAL; 1.5 MG, ORAL, 2 MG, ORAL; 2.5 MG, ORAL; 1 MG ORAL
     Route: 048
     Dates: start: 20011217
  5. RISPERDAL [Suspect]
     Indication: SCHIZOPHRENIA
     Dosage: 1 MG, ORAL; 1.5 MG, ORAL, 2 MG, ORAL; 2.5 MG, ORAL; 1 MG ORAL
     Route: 048
     Dates: start: 20020401
  6. RISPERDAL [Suspect]
     Indication: SCHIZOPHRENIA
     Dosage: 1 MG, ORAL; 1.5 MG, ORAL, 2 MG, ORAL; 2.5 MG, ORAL; 1 MG ORAL
     Route: 048
     Dates: start: 20020610
  7. RISPERDAL [Suspect]
     Indication: SCHIZOPHRENIA
     Dosage: 1 MG, ORAL; 1.5 MG, ORAL, 2 MG, ORAL; 2.5 MG, ORAL; 1 MG ORAL
     Route: 048
     Dates: start: 20020701
  8. RISPERIDONE [Suspect]
     Indication: SCHIZOPHRENIA
     Dosage: 2 MG, ORAL; 1 MG, ORAL; 0.5 MG, 2 IN 1 DAY, ORAL; 2 MG, ORAL; 4 MG, ORAL, 6 MG, ORAL, 5 MG ORAL, 4 M
     Route: 048
     Dates: start: 20020930
  9. RISPERIDONE [Suspect]
     Indication: SCHIZOPHRENIA
     Dosage: 2 MG, ORAL; 1 MG, ORAL; 0.5 MG, 2 IN 1 DAY, ORAL; 2 MG, ORAL; 4 MG, ORAL, 6 MG, ORAL, 5 MG ORAL, 4 M
     Route: 048
     Dates: start: 20021101
  10. RISPERIDONE [Suspect]
     Indication: SCHIZOPHRENIA
     Dosage: 2 MG, ORAL; 1 MG, ORAL; 0.5 MG, 2 IN 1 DAY, ORAL; 2 MG, ORAL; 4 MG, ORAL, 6 MG, ORAL, 5 MG ORAL, 4 M
     Route: 048
     Dates: start: 20030228
  11. RISPERIDONE [Suspect]
     Indication: SCHIZOPHRENIA
     Dosage: 2 MG, ORAL; 1 MG, ORAL; 0.5 MG, 2 IN 1 DAY, ORAL; 2 MG, ORAL; 4 MG, ORAL, 6 MG, ORAL, 5 MG ORAL, 4 M
     Route: 048
     Dates: start: 20030319
  12. RISPERIDONE [Suspect]
     Indication: SCHIZOPHRENIA
     Dosage: 2 MG, ORAL; 1 MG, ORAL; 0.5 MG, 2 IN 1 DAY, ORAL; 2 MG, ORAL; 4 MG, ORAL, 6 MG, ORAL, 5 MG ORAL, 4 M
     Route: 048
     Dates: start: 20030716
  13. RISPERIDONE [Suspect]
     Indication: SCHIZOPHRENIA
     Dosage: 2 MG, ORAL; 1 MG, ORAL; 0.5 MG, 2 IN 1 DAY, ORAL; 2 MG, ORAL; 4 MG, ORAL, 6 MG, ORAL, 5 MG ORAL, 4 M
     Route: 048
     Dates: start: 20030807
  14. RISPERIDONE [Suspect]
     Indication: SCHIZOPHRENIA
     Dosage: 2 MG, ORAL; 1 MG, ORAL; 0.5 MG, 2 IN 1 DAY, ORAL; 2 MG, ORAL; 4 MG, ORAL, 6 MG, ORAL, 5 MG ORAL, 4 M
     Route: 048
     Dates: start: 20030811
  15. RISPERIDONE [Suspect]
     Indication: SCHIZOPHRENIA
     Dosage: 2 MG, ORAL; 1 MG, ORAL; 0.5 MG, 2 IN 1 DAY, ORAL; 2 MG, ORAL; 4 MG, ORAL, 6 MG, ORAL, 5 MG ORAL, 4 M
     Route: 048
     Dates: start: 20030909
  16. RISPERIDONE [Suspect]
     Indication: SCHIZOPHRENIA
     Dosage: 2 MG, ORAL; 1 MG, ORAL; 0.5 MG, 2 IN 1 DAY, ORAL; 2 MG, ORAL; 4 MG, ORAL, 6 MG, ORAL, 5 MG ORAL, 4 M
     Route: 048
     Dates: start: 20030926
  17. RISPERIDONE [Suspect]
     Indication: SCHIZOPHRENIA
     Dosage: 2 MG, ORAL; 1 MG, ORAL; 0.5 MG, 2 IN 1 DAY, ORAL; 2 MG, ORAL; 4 MG, ORAL, 6 MG, ORAL, 5 MG ORAL, 4 M
     Route: 048
     Dates: start: 20031008
  18. RISPERIDONE [Suspect]
     Indication: SCHIZOPHRENIA
     Dosage: 2 MG, ORAL; 1 MG, ORAL; 0.5 MG, 2 IN 1 DAY, ORAL; 2 MG, ORAL; 4 MG, ORAL, 6 MG, ORAL, 5 MG ORAL, 4 M
     Route: 048
     Dates: start: 20040107
  19. BROMPERIDOL (UNSPECIFIED) BROMPERIDOL [Concomitant]
  20. BIPERIDEN (UNKNOWN) BIPERIDEN [Concomitant]
  21. HALOPERIDOL [Concomitant]
  22. HALOPERIDOL [Concomitant]
  23. HALOPERIDOL [Concomitant]
  24. DIAZEPAM [Concomitant]
  25. CHLORPROMAZINE [Concomitant]
  26. PROMETHAZINE (PROMETHAZINE) UNKNOWN [Concomitant]

REACTIONS (2)
  - CAESAREAN SECTION [None]
  - DRUG EXPOSURE DURING PREGNANCY [None]
